FAERS Safety Report 6023511-4 (Version None)
Quarter: 2008Q4

REPORT INFORMATION
  Report Type: 
  Country: None (occurrence: None)
  Receive Date: 20081230
  Receipt Date: 20081218
  Transmission Date: 20090506
  Serious: Yes (Other)
  Sender: FDA-Public Use
  Company Number: PHHY2008BR32575

PATIENT
  Sex: Male
  Weight: 72 kg

DRUGS (6)
  1. CODATEN [Suspect]
     Indication: BONE PAIN
     Dosage: 1 TO 4 TABLETS DAILY
     Route: 048
     Dates: start: 20080101
  2. METFORMIN HCL [Concomitant]
     Indication: DIABETES MELLITUS
     Dosage: 3 TABLETS PER DAY
     Route: 048
  3. TICLOBAL [Concomitant]
     Indication: CARDIAC DISORDER
     Dosage: 250 MG, UNK
     Route: 048
     Dates: start: 20071101
  4. GABAPENTIN [Concomitant]
     Indication: PAIN
     Dosage: UNK
     Route: 048
     Dates: start: 20071001
  5. CITTA [Concomitant]
     Indication: DEPRESSION
     Dosage: 1 TABLET PER DAY
     Route: 048
     Dates: start: 20070301
  6. EXFORGE [Concomitant]
     Indication: HYPERTENSION
     Dosage: 1 TABLET PER DAY
     Route: 048

REACTIONS (2)
  - INTERVERTEBRAL DISC OPERATION [None]
  - INTERVERTEBRAL DISC PROTRUSION [None]
